FAERS Safety Report 11991705 (Version 2)
Quarter: 2017Q1

REPORT INFORMATION
  Report Type: Spontaneous
  Country: US (occurrence: US)
  Receive Date: 20160203
  Receipt Date: 20170309
  Transmission Date: 20170428
  Serious: Yes (Other)
  Sender: FDA-Public Use
  Company Number: US-JNJFOC-20160106424

PATIENT
  Age: 14 Year
  Sex: Male

DRUGS (4)
  1. INVEGA [Suspect]
     Active Substance: PALIPERIDONE
     Indication: BIPOLAR DISORDER
     Route: 048
     Dates: start: 201001, end: 20100802
  2. RISPERDAL [Suspect]
     Active Substance: RISPERIDONE
     Indication: BIPOLAR DISORDER
     Dosage: 0.5 MG; 1 MG
     Route: 048
     Dates: start: 2007, end: 20080708
  3. RISPERDAL [Suspect]
     Active Substance: RISPERIDONE
     Indication: MAJOR DEPRESSION
     Dosage: 0.5 MG; 1 MG
     Route: 048
     Dates: start: 2007, end: 20080708
  4. INVEGA [Suspect]
     Active Substance: PALIPERIDONE
     Indication: MAJOR DEPRESSION
     Route: 048
     Dates: start: 201001, end: 20100802

REACTIONS (8)
  - Fatigue [Unknown]
  - Weight increased [Unknown]
  - Cerebrovascular accident [Unknown]
  - Hypersomnia [Unknown]
  - Tardive dyskinesia [Unknown]
  - Diabetes mellitus [Unknown]
  - Extrapyramidal disorder [Unknown]
  - Gynaecomastia [Unknown]

NARRATIVE: CASE EVENT DATE: 2007
